FAERS Safety Report 10206523 (Version 2)
Quarter: 2014Q2

REPORT INFORMATION
  Report Type: Report from Study
  Country: JP (occurrence: JP)
  Receive Date: 20140530
  Receipt Date: 20140606
  Transmission Date: 20141212
  Serious: Yes (Death)
  Sender: FDA-Public Use
  Company Number: JP-PFIZER INC-2014146551

PATIENT
  Age: 69 Year
  Sex: Female

DRUGS (2)
  1. PREGABALIN [Suspect]
     Indication: NERVE COMPRESSION
     Dosage: 25 MG, 1X/DAY
     Route: 048
     Dates: start: 20111012, end: 20111026
  2. PREGABALIN [Suspect]
     Indication: NEUROPATHY PERIPHERAL
     Dosage: 75MG/DAY
     Route: 048
     Dates: start: 20111027

REACTIONS (1)
  - Rectal cancer [Fatal]
